FAERS Safety Report 4476556-X (Version None)
Quarter: 2004Q4

REPORT INFORMATION
  Report Type: 
  Country: None (occurrence: None)
  Receive Date: 20041013
  Receipt Date: 20040929
  Transmission Date: 20050328
  Serious: Yes (Life-Threatening, Hospitalization, Disabling, Other)
  Sender: FDA-Public Use
  Company Number: CHPA2004US03260

PATIENT
  Age: 68 Year
  Sex: Female
  Weight: 59.9 kg

DRUGS (6)
  1. TRANSDERM SCOP [Suspect]
     Indication: MOTION SICKNESS
     Dosage: 1 PATCH, Q72H, TRANSDERMAL
     Route: 062
     Dates: start: 20030501, end: 20030501
  2. CALCIUM [Concomitant]
  3. VITAMIN E [Concomitant]
  4. MULTIVITAMINS (PANTHENOL, RETINOL) [Concomitant]
  5. PLAVIX [Concomitant]
  6. ACCUPRIL [Concomitant]

REACTIONS (13)
  - AMNESIA [None]
  - CEREBROVASCULAR ACCIDENT [None]
  - CONFUSIONAL STATE [None]
  - DISORIENTATION [None]
  - DIZZINESS [None]
  - DRUG TOXICITY [None]
  - EYELID PTOSIS [None]
  - HALLUCINATION [None]
  - MALIGNANT HYPERTENSION [None]
  - NAUSEA [None]
  - SOMNOLENCE [None]
  - TRANSIENT ISCHAEMIC ATTACK [None]
  - TREMOR [None]
